FAERS Safety Report 9871775 (Version 1)
Quarter: 2014Q1

REPORT INFORMATION
  Report Type: Spontaneous
  Country: US (occurrence: US)
  Receive Date: 20140205
  Receipt Date: 20140205
  Transmission Date: 20141002
  Serious: No
  Sender: FDA-Public Use
  Company Number: US-AMGEN-USASP2013018445

PATIENT
  Age: 63 Year
  Sex: Female

DRUGS (3)
  1. NEULASTA [Suspect]
     Indication: PRODUCT USED FOR UNKNOWN INDICATION
     Dosage: UNK
     Dates: end: 20110817
  2. TAXOL [Concomitant]
     Indication: OVARIAN CANCER RECURRENT
     Dosage: UNK
     Dates: start: 201105, end: 201108
  3. CISPLATIN [Concomitant]
     Indication: OVARIAN CANCER RECURRENT
     Dosage: UNK
     Dates: start: 201105, end: 201108

REACTIONS (2)
  - Bone pain [Not Recovered/Not Resolved]
  - Hypoaesthesia [Not Recovered/Not Resolved]
